FAERS Safety Report 5557073-2 (Version None)
Quarter: 2007Q4

REPORT INFORMATION
  Report Type: 
  Country: None (occurrence: None)
  Receive Date: 20071214
  Receipt Date: 20071204
  Transmission Date: 20080405
  Serious: Yes (Hospitalization)
  Sender: FDA-Public Use
  Company Number: BR-JNJFOC-20071201819

PATIENT
  Age: 46 Year
  Sex: Female

DRUGS (4)
  1. REMICADE [Suspect]
     Indication: RHEUMATOID ARTHRITIS
     Route: 042
  2. SOLU-MEDROL [Concomitant]
     Indication: RHEUMATOID ARTHRITIS
     Route: 042
  3. PREDNISONE [Concomitant]
     Route: 048
  4. METHOTREXATE [Concomitant]
     Indication: RHEUMATOID ARTHRITIS
     Route: 048

REACTIONS (5)
  - CHOLECYSTITIS [None]
  - ENDOCARDITIS BACTERIAL [None]
  - RHEUMATOID LUNG [None]
  - SEPSIS [None]
  - SKIN NECROSIS [None]
